FAERS Safety Report 23435465 (Version 1)
Quarter: 2024Q1

REPORT INFORMATION
  Report Type: Report from Study
  Country: US (occurrence: US)
  Receive Date: 20240124
  Receipt Date: 20240124
  Transmission Date: 20240409
  Serious: Yes (Other)
  Sender: FDA-Public Use
  Company Number: US-JAZZ PHARMACEUTICALS-2024-US-001241

PATIENT
  Sex: Female

DRUGS (4)
  1. XYWAV [Suspect]
     Active Substance: CALCIUM OXYBATE\MAGNESIUM OXYBATE\POTASSIUM OXYBATE\SODIUM OXYBATE
     Indication: Hypersomnia
  2. SAMBUCUS KIDS [ASCORBIC ACID;SAMBUCUS NIGRA;ZINC] [Concomitant]
     Indication: Product used for unknown indication
     Dosage: UNK
     Dates: start: 20200101
  3. LEVACECARNINE HYDROCHLORIDE [Concomitant]
     Active Substance: LEVACECARNINE HYDROCHLORIDE
     Indication: Product used for unknown indication
     Dosage: UNK
     Dates: start: 20180101
  4. FOCUS FACTOR [Concomitant]
     Dosage: 0000
     Dates: start: 20230901

REACTIONS (1)
  - Neuropathy peripheral [Unknown]
